FAERS Safety Report 20141752 (Version 1)
Quarter: 2021Q4

REPORT INFORMATION
  Report Type: Spontaneous
  Country: CA (occurrence: CA)
  Receive Date: 20211202
  Receipt Date: 20211202
  Transmission Date: 20220303
  Serious: Yes (Other)
  Sender: FDA-Public Use
  Company Number: CA-TEVA-2021-CA-1983095

PATIENT
  Age: 15 Year
  Sex: Male

DRUGS (39)
  1. CLONIDINE [Suspect]
     Active Substance: CLONIDINE
     Indication: Intellectual disability
     Route: 065
  2. CLONIDINE [Suspect]
     Active Substance: CLONIDINE
     Indication: Behaviour disorder
     Dosage: .2 MILLIGRAM DAILY;
     Route: 065
  3. CLONIDINE [Suspect]
     Active Substance: CLONIDINE
     Indication: Autism spectrum disorder
     Route: 065
  4. CLONIDINE [Suspect]
     Active Substance: CLONIDINE
     Route: 065
  5. CLONIDINE [Suspect]
     Active Substance: CLONIDINE
     Dosage: .2 MILLIGRAM DAILY;
     Route: 065
  6. CLONIDINE [Suspect]
     Active Substance: CLONIDINE
     Route: 065
  7. CLONIDINE [Suspect]
     Active Substance: CLONIDINE
     Route: 065
  8. CLONIDINE [Suspect]
     Active Substance: CLONIDINE
     Route: 065
  9. CLONIDINE [Suspect]
     Active Substance: CLONIDINE
     Dosage: .2 MILLIGRAM DAILY;
     Route: 065
  10. LAMOTRIGINE [Suspect]
     Active Substance: LAMOTRIGINE
     Indication: Behaviour disorder
     Dosage: 50 MILLIGRAM DAILY;
     Route: 065
  11. OLANZAPINE [Suspect]
     Active Substance: OLANZAPINE
     Indication: Intellectual disability
     Dosage: 20 MILLIGRAM DAILY;
     Route: 065
  12. OLANZAPINE [Suspect]
     Active Substance: OLANZAPINE
     Indication: Behaviour disorder
     Route: 065
  13. OLANZAPINE [Suspect]
     Active Substance: OLANZAPINE
     Route: 065
  14. OLANZAPINE [Suspect]
     Active Substance: OLANZAPINE
     Dosage: 20 MILLIGRAM DAILY;
     Route: 065
  15. QUETIAPINE FUMARATE [Suspect]
     Active Substance: QUETIAPINE FUMARATE
     Indication: Behaviour disorder
     Dosage: 500 MILLIGRAM DAILY;
     Route: 048
  16. QUETIAPINE FUMARATE [Suspect]
     Active Substance: QUETIAPINE FUMARATE
     Indication: Intellectual disability
     Route: 048
  17. QUETIAPINE FUMARATE [Suspect]
     Active Substance: QUETIAPINE FUMARATE
     Indication: Autism spectrum disorder
     Dosage: 50 MILLIGRAM DAILY;
     Route: 048
  18. QUETIAPINE FUMARATE [Suspect]
     Active Substance: QUETIAPINE FUMARATE
     Dosage: 50 MILLIGRAM DAILY;
     Route: 048
  19. QUETIAPINE FUMARATE [Suspect]
     Active Substance: QUETIAPINE FUMARATE
     Route: 048
  20. QUETIAPINE FUMARATE [Suspect]
     Active Substance: QUETIAPINE FUMARATE
     Dosage: 50 MILLIGRAM DAILY;
     Route: 048
  21. QUETIAPINE FUMARATE [Suspect]
     Active Substance: QUETIAPINE FUMARATE
     Dosage: 500 MILLIGRAM DAILY;
     Route: 048
  22. QUETIAPINE FUMARATE [Suspect]
     Active Substance: QUETIAPINE FUMARATE
     Dosage: 500 MILLIGRAM DAILY;
     Route: 048
  23. QUETIAPINE FUMARATE [Suspect]
     Active Substance: QUETIAPINE FUMARATE
     Route: 048
  24. SERTRALINE HYDROCHLORIDE [Suspect]
     Active Substance: SERTRALINE HYDROCHLORIDE
     Indication: Intellectual disability
     Dosage: 100 MILLIGRAM DAILY;
     Route: 065
  25. SERTRALINE HYDROCHLORIDE [Suspect]
     Active Substance: SERTRALINE HYDROCHLORIDE
     Indication: Behaviour disorder
     Dosage: 100 MILLIGRAM DAILY;
     Route: 065
  26. SERTRALINE HYDROCHLORIDE [Suspect]
     Active Substance: SERTRALINE HYDROCHLORIDE
     Indication: Autism spectrum disorder
     Route: 065
  27. SERTRALINE HYDROCHLORIDE [Suspect]
     Active Substance: SERTRALINE HYDROCHLORIDE
     Dosage: 100 MILLIGRAM DAILY;
     Route: 065
  28. SERTRALINE HYDROCHLORIDE [Suspect]
     Active Substance: SERTRALINE HYDROCHLORIDE
     Dosage: 100 MILLIGRAM DAILY;
     Route: 065
  29. SERTRALINE HYDROCHLORIDE [Suspect]
     Active Substance: SERTRALINE HYDROCHLORIDE
     Dosage: 100 MILLIGRAM DAILY;
     Route: 065
  30. SERTRALINE HYDROCHLORIDE [Suspect]
     Active Substance: SERTRALINE HYDROCHLORIDE
     Dosage: 100 MILLIGRAM DAILY;
     Route: 065
  31. SERTRALINE HYDROCHLORIDE [Suspect]
     Active Substance: SERTRALINE HYDROCHLORIDE
     Route: 065
  32. SERTRALINE HYDROCHLORIDE [Suspect]
     Active Substance: SERTRALINE HYDROCHLORIDE
     Route: 065
  33. SERTRALINE HYDROCHLORIDE [Suspect]
     Active Substance: SERTRALINE HYDROCHLORIDE
     Dosage: 100 MILLIGRAM DAILY;
     Route: 065
  34. SERTRALINE HYDROCHLORIDE [Suspect]
     Active Substance: SERTRALINE HYDROCHLORIDE
     Dosage: 100 MILLIGRAM DAILY;
     Route: 065
  35. SERTRALINE HYDROCHLORIDE [Suspect]
     Active Substance: SERTRALINE HYDROCHLORIDE
     Dosage: 100 MILLIGRAM DAILY;
     Route: 065
  36. ZIPRASIDONE HYDROCHLORIDE [Concomitant]
     Active Substance: ZIPRASIDONE HYDROCHLORIDE
     Indication: Intellectual disability
     Dosage: 80 MILLIGRAM DAILY;
     Route: 065
  37. ZIPRASIDONE HYDROCHLORIDE [Concomitant]
     Active Substance: ZIPRASIDONE HYDROCHLORIDE
     Indication: Autism spectrum disorder
     Dosage: 80 MILLIGRAM DAILY;
     Route: 065
  38. ZIPRASIDONE HYDROCHLORIDE [Concomitant]
     Active Substance: ZIPRASIDONE HYDROCHLORIDE
     Dosage: 80 MILLIGRAM DAILY;
     Route: 065
  39. ZIPRASIDONE HYDROCHLORIDE [Concomitant]
     Active Substance: ZIPRASIDONE HYDROCHLORIDE
     Dosage: 80 MILLIGRAM DAILY;
     Route: 065

REACTIONS (7)
  - Blood prolactin increased [Recovered/Resolved]
  - Aggression [Recovered/Resolved]
  - Obesity [Recovered/Resolved]
  - Overweight [Recovered/Resolved]
  - Product prescribing issue [Recovered/Resolved]
  - Product use issue [Recovered/Resolved]
  - Off label use [Recovered/Resolved]
